FAERS Safety Report 8335361-4 (Version None)
Quarter: 2012Q2

REPORT INFORMATION
  Report Type: 
  Country: None (occurrence: None)
  Receive Date: 20120503
  Receipt Date: 20120427
  Transmission Date: 20120825
  Serious: Yes (Other)
  Sender: FDA-Public Use
  Company Number: PHHY2012CA036395

PATIENT
  Age: 10 Year
  Sex: Male
  Weight: 44 kg

DRUGS (9)
  1. METHYLPHENIDATE [Concomitant]
  2. FLUVOXAMINE MALEATE [Concomitant]
  3. ZIPRASIDONE HCL [Suspect]
  4. CODEINE PHOSPHATE [Suspect]
  5. FENTANYL CITRATE [Suspect]
  6. PROPOFOL [Concomitant]
  7. OLANZAPINE [Concomitant]
  8. MORPHINE [Suspect]
  9. DIVALPROEX SODIUM [Concomitant]

REACTIONS (12)
  - BLOOD PRESSURE INCREASED [None]
  - FLUSHING [None]
  - HEART RATE INCREASED [None]
  - BLEPHAROSPASM [None]
  - HYPERHIDROSIS [None]
  - AGITATION [None]
  - CONFUSIONAL STATE [None]
  - SYNCOPE [None]
  - TREMOR [None]
  - AMNESIA [None]
  - SEROTONIN SYNDROME [None]
  - BLOOD CREATINE PHOSPHOKINASE INCREASED [None]
